FAERS Safety Report 9058393 (Version 1)
Quarter: 2013Q1

REPORT INFORMATION
  Report Type: Spontaneous
  Country: US (occurrence: None)
  Receive Date: 20130205
  Receipt Date: 20130205
  Transmission Date: 20140127
  Serious: Yes (Other)
  Sender: FDA-Public Use
  Company Number: None

PATIENT
  Age: 63 Year
  Sex: Male

DRUGS (8)
  1. LETAIRIS [Suspect]
     Indication: PULMONARY ARTERIAL HYPERTENSION
     Route: 048
     Dates: start: 201210, end: 201301
  2. BACTRIM [Concomitant]
  3. LEVOTHYROID [Concomitant]
  4. INSULIN LISPRO [Concomitant]
  5. SPIRONOLACTONE [Concomitant]
  6. CARVEDILOL [Concomitant]
  7. ADCIRCA [Concomitant]
  8. BUMETANIDE [Concomitant]

REACTIONS (1)
  - General physical health deterioration [None]
